FAERS Safety Report 5216948-4 (Version None)
Quarter: 2007Q1

REPORT INFORMATION
  Report Type: 
  Country: None (occurrence: None)
  Receive Date: 20070124
  Receipt Date: 20070116
  Transmission Date: 20070707
  Serious: Yes (Other)
  Sender: FDA-Public Use
  Company Number: US-JNJFOC-20061003088

PATIENT
  Sex: Male
  Weight: 71.67 kg

DRUGS (3)
  1. KETOCONAZOLE [Suspect]
     Indication: DRUG USE FOR UNKNOWN INDICATION
  2. CASODEX [Suspect]
     Indication: DRUG USE FOR UNKNOWN INDICATION
  3. HORMONE THERAPY [Concomitant]

REACTIONS (2)
  - PAIN IN EXTREMITY [None]
  - PROSTATE CANCER METASTATIC [None]
